FAERS Safety Report 7535750-1 (Version None)
Quarter: 2011Q2

REPORT INFORMATION
  Report Type: 
  Country: None (occurrence: None)
  Receive Date: 20110609
  Receipt Date: 20110315
  Transmission Date: 20111010
  Serious: No
  Sender: FDA-Public Use
  Company Number: US-KINGPHARMUSA00001-K201100289

PATIENT
  Age: 56 Year
  Sex: Male

DRUGS (3)
  1. EMBEDA [Suspect]
     Indication: ARTHRALGIA
     Dosage: 30 MG, BID
     Route: 048
     Dates: start: 20101201
  2. ROXICODONE [Concomitant]
     Indication: BREAKTHROUGH PAIN
  3. EMBEDA [Suspect]
     Dosage: 50 MG, BID
     Route: 048
     Dates: end: 20110201

REACTIONS (7)
  - CONSTIPATION [None]
  - MEMORY IMPAIRMENT [None]
  - IMPAIRED DRIVING ABILITY [None]
  - FEELING ABNORMAL [None]
  - MALAISE [None]
  - THINKING ABNORMAL [None]
  - DRUG INEFFECTIVE [None]
